FAERS Safety Report 9915247 (Version 2)
Quarter: 2014Q3

REPORT INFORMATION
  Report Type: Spontaneous
  Country: US (occurrence: US)
  Receive Date: 20140221
  Receipt Date: 20140827
  Transmission Date: 20150326
  Serious: Yes (Life-Threatening, Hospitalization, Other)
  Sender: FDA-Public Use
  Company Number: US-BRISTOL-MYERS SQUIBB COMPANY-20142170

PATIENT
  Age: 70 Year
  Sex: Male
  Weight: 104.31 kg

DRUGS (2)
  1. LEVEMIR [Concomitant]
     Active Substance: INSULIN DETEMIR
     Indication: DIABETES MELLITUS
  2. BYETTA [Suspect]
     Active Substance: EXENATIDE
     Indication: TYPE 2 DIABETES MELLITUS
     Route: 058
     Dates: start: 2009

REACTIONS (7)
  - Haemorrhage [Unknown]
  - Dyspnoea [Recovering/Resolving]
  - Respiratory arrest [Unknown]
  - Thrombosis [Recovering/Resolving]
  - Blood glucose increased [Unknown]
  - Drug dispensing error [Unknown]
  - Rib fracture [Unknown]

NARRATIVE: CASE EVENT DATE: 201312
